FAERS Safety Report 22079753 (Version 1)
Quarter: 2023Q1

REPORT INFORMATION
  Report Type: Spontaneous
  Country: US (occurrence: None)
  Receive Date: 20230308
  Receipt Date: 20230308
  Transmission Date: 20230418
  Serious: No
  Sender: FDA-Public Use
  Company Number: None

PATIENT
  Age: 95 Year
  Sex: Female
  Weight: 44.0 kg

DRUGS (15)
  1. PROMACTA [Suspect]
     Active Substance: ELTROMBOPAG OLAMINE
     Indication: Thrombocytopenia
     Dosage: FREQUENCY : DAILY;?
     Route: 048
     Dates: start: 202207, end: 20230307
  2. BUSPIRONE [Concomitant]
     Active Substance: BUSPIRONE HYDROCHLORIDE
  3. DICYCLOMINE [Concomitant]
     Active Substance: DICYCLOMINE HYDROCHLORIDE
  4. DIGOXIN [Concomitant]
     Active Substance: DIGOXIN
  5. DONEPEZIL [Concomitant]
     Active Substance: DONEPEZIL
  6. ELIQUIS [Concomitant]
     Active Substance: APIXABAN
  7. FENOFIBRATE [Concomitant]
     Active Substance: FENOFIBRATE
  8. GUAIFENESIN [Concomitant]
     Active Substance: GUAIFENESIN
  9. LATANOPROST [Concomitant]
     Active Substance: LATANOPROST
  10. LOSARTAN [Concomitant]
     Active Substance: LOSARTAN
  11. PANTOPRAZOLE [Concomitant]
     Active Substance: PANTOPRAZOLE
  12. PREDNISONE [Concomitant]
     Active Substance: PREDNISONE
  13. ROPINIROLE [Concomitant]
     Active Substance: ROPINIROLE
  14. TRUSOPT [Concomitant]
     Active Substance: DORZOLAMIDE HYDROCHLORIDE
  15. ZOFRAN [Concomitant]
     Active Substance: ONDANSETRON HYDROCHLORIDE

REACTIONS (1)
  - Hospice care [None]
